FAERS Safety Report 7198648-7 (Version None)
Quarter: 2010Q4

REPORT INFORMATION
  Report Type: 
  Country: None (occurrence: None)
  Receive Date: 20101227
  Receipt Date: 20101217
  Transmission Date: 20110411
  Serious: Yes (Hospitalization)
  Sender: FDA-Public Use
  Company Number: US-ABBOTT-10P-163-0692551-00

PATIENT
  Sex: Female
  Weight: 62.652 kg

DRUGS (14)
  1. HUMIRA [Suspect]
     Indication: RHEUMATOID ARTHRITIS
     Dates: start: 20090201, end: 20100401
  2. HUMIRA [Suspect]
  3. METHOTREXATE [Concomitant]
     Indication: RHEUMATOID ARTHRITIS
     Dates: end: 20100401
  4. METHOTREXATE [Concomitant]
  5. SALICYLATE [Concomitant]
     Indication: INFLAMMATION
  6. SALICYLATE [Concomitant]
     Indication: PAIN
  7. ADVIL [Concomitant]
     Indication: PAIN
  8. FOLIC ACID [Concomitant]
     Indication: PRODUCT USED FOR UNKNOWN INDICATION
  9. ATENOLOL [Concomitant]
     Indication: HYPERTENSION
  10. FUROSEMIDE [Concomitant]
     Indication: HYPERTENSION
  11. AMLODIPINE [Concomitant]
     Indication: HYPERTENSION
  12. ACETAMINOPHEN [Concomitant]
     Indication: PAIN
  13. CALCIUM NITRATE [Concomitant]
     Indication: BONE DISORDER
  14. RECLAST [Concomitant]
     Indication: OSTEOPOROSIS
     Route: 042

REACTIONS (4)
  - BONE CYST [None]
  - GROIN PAIN [None]
  - HIP FRACTURE [None]
  - LIMB ASYMMETRY [None]
